FAERS Safety Report 5887683-4 (Version None)
Quarter: 2008Q3

REPORT INFORMATION
  Report Type: 
  Country: None (occurrence: None)
  Receive Date: 20080818
  Receipt Date: 20070830
  Transmission Date: 20090109
  Serious: Yes (Hospitalization)
  Sender: FDA-Public Use
  Company Number: 20074069

PATIENT
  Age: 62 Year
  Sex: Female

DRUGS (1)
  1. LIORESAL [Suspect]
     Indication: MUSCLE SPASTICITY
     Dosage: 280 MCG, DAILY, INTRATHECAL
     Route: 037

REACTIONS (3)
  - OVERDOSE [None]
  - PNEUMONIA [None]
  - SOMNOLENCE [None]
